FAERS Safety Report 8097051-5 (Version None)
Quarter: 2012Q1

REPORT INFORMATION
  Report Type: 
  Country: None (occurrence: None)
  Receive Date: 20120131
  Receipt Date: 20120120
  Transmission Date: 20120608
  Serious: Yes (Hospitalization)
  Sender: FDA-Public Use
  Company Number: US-BAYER-201018560NA

PATIENT
  Age: 28 Year
  Sex: Female

DRUGS (15)
  1. YAZ [Suspect]
     Route: 048
  2. YASMIN [Suspect]
     Dosage: UNK
     Route: 048
  3. IBUPROFEN [Concomitant]
     Dosage: 600 MG, PRN
     Route: 048
  4. DARVOCET-N 50 [Concomitant]
     Dosage: 650 MG, PRN
     Route: 048
  5. CITALOPRAM HYDROBROMIDE [Concomitant]
     Dosage: 20 MG, QD
     Route: 048
  6. TOPAMAX [Concomitant]
     Dosage: 100 MG, BID
     Route: 048
  7. BENZONATATE [Concomitant]
     Dosage: 100 MG, 1-2 CAPSULES THREE TIMES A DAY
     Route: 048
  8. AMITRIPTYLINE HCL [Concomitant]
     Dosage: 25 MG, HS
     Route: 048
  9. LEXAPRO [Concomitant]
     Dosage: 20 MG, QD
     Route: 048
  10. VICODIN [Concomitant]
     Dosage: 7.5/750 MG
     Route: 048
  11. PROMETHAZINE [Concomitant]
     Dosage: 25 MG, PRN
     Route: 048
  12. BACLOFEN [Concomitant]
     Dosage: 20 MG, UNK
     Route: 048
  13. DROSPIRENONE AND ETHINYL ESTRADIOL [Suspect]
  14. RANITIDINE [Concomitant]
     Dosage: 150 MG, BID
     Route: 048
  15. SEROQUEL [Concomitant]
     Dosage: 25 MG, TWO TABLETS AT BEDTIME
     Route: 048

REACTIONS (3)
  - INJURY [None]
  - PULMONARY EMBOLISM [None]
  - PAIN [None]
